FAERS Safety Report 7046340-1 (Version None)
Quarter: 2010Q4

REPORT INFORMATION
  Report Type: 
  Country: None (occurrence: None)
  Receive Date: 20101014
  Receipt Date: 20101004
  Transmission Date: 20110411
  Serious: Yes (Hospitalization)
  Sender: FDA-Public Use
  Company Number: FR-BAXTER-2010BH025364

PATIENT
  Age: 73 Year
  Sex: Male

DRUGS (7)
  1. MESNA [Suspect]
     Indication: PRODUCT USED FOR UNKNOWN INDICATION
     Route: 042
     Dates: start: 20091001, end: 20090101
  2. MESNA [Suspect]
     Route: 042
     Dates: start: 20090901, end: 20090901
  3. CYCLOPHOSPHAMIDE [Suspect]
     Indication: MULTIPLE MYELOMA
     Route: 042
     Dates: start: 20091005, end: 20090101
  4. CYCLOPHOSPHAMIDE [Suspect]
     Route: 042
     Dates: start: 20090922, end: 20090922
  5. DOXORUBICIN HCL [Suspect]
     Indication: MULTIPLE MYELOMA
     Route: 042
     Dates: start: 20091005, end: 20090101
  6. DOXORUBICIN HCL [Suspect]
     Route: 042
     Dates: start: 20090922, end: 20090922
  7. ZOFRAN [Concomitant]
     Indication: PRODUCT USED FOR UNKNOWN INDICATION
     Route: 042
     Dates: start: 20090901

REACTIONS (1)
  - STEVENS-JOHNSON SYNDROME [None]
